FAERS Safety Report 22672743 (Version 2)
Quarter: 2024Q1

REPORT INFORMATION
  Report Type: Spontaneous
  Country: CN (occurrence: CN)
  Receive Date: 20230705
  Receipt Date: 20240228
  Transmission Date: 20240410
  Serious: Yes (Other)
  Sender: FDA-Public Use
  Company Number: CN-PFIZER INC-PV202300116023

PATIENT
  Age: 3 Month
  Sex: Male
  Weight: 7 kg

DRUGS (1)
  1. AZITHROMYCIN [Suspect]
     Active Substance: AZITHROMYCIN
     Indication: Pneumonia
     Dosage: 70 MG, 1X/DAY
     Route: 048
     Dates: start: 20230522, end: 20230623

REACTIONS (4)
  - Hypersensitivity [Recovered/Resolved]
  - Infantile vomiting [Recovered/Resolved]
  - Infantile diarrhoea [Recovered/Resolved]
  - Off label use [Unknown]

NARRATIVE: CASE EVENT DATE: 20230522
